FAERS Safety Report 9750989 (Version 1)
Quarter: 2013Q4

REPORT INFORMATION
  Report Type: Spontaneous
  Country: US (occurrence: US)
  Receive Date: 20131212
  Receipt Date: 20131212
  Transmission Date: 20140711
  Serious: No
  Sender: FDA-Public Use
  Company Number: US-TEVA-400395USA

PATIENT
  Sex: Female
  Weight: 141.19 kg

DRUGS (4)
  1. PARAGARD 380A [Suspect]
     Indication: CONTRACEPTION
     Route: 015
     Dates: start: 20121127, end: 20130418
  2. TOPAMAX [Concomitant]
  3. SPIRONOLACTONE [Concomitant]
     Indication: ANDROGENS ABNORMAL
  4. PROZAC [Concomitant]
     Indication: DEPRESSION

REACTIONS (1)
  - Metrorrhagia [Unknown]
